FAERS Safety Report 5187296-6 (Version None)
Quarter: 2006Q4

REPORT INFORMATION
  Report Type: 
  Country: None (occurrence: None)
  Receive Date: 20061214
  Receipt Date: 20061202
  Transmission Date: 20070319
  Serious: Yes (Hospitalization)
  Sender: FDA-Public Use
  Company Number: 2006149411

PATIENT
  Age: 55 Year
  Sex: Male
  Weight: 53 kg

DRUGS (1)
  1. SUTENT [Suspect]
     Indication: RENAL CELL CARCINOMA STAGE UNSPECIFIED
     Dosage: 50  MG (50 MG, 1 IN 1 D), ORAL
     Route: 048
     Dates: start: 20061025, end: 20061120

REACTIONS (2)
  - ABDOMINAL DISTENSION [None]
  - NAUSEA [None]
